FAERS Safety Report 26215719 (Version 1)
Quarter: 2025Q4

REPORT INFORMATION
  Report Type: Spontaneous
  Country: EU (occurrence: EU)
  Receive Date: 20251231
  Receipt Date: 20251231
  Transmission Date: 20260117
  Serious: Yes (Hospitalization, Other)
  Sender: AUROBINDO
  Company Number: EU-URPL-DML-MLP.4401.1.548.2024

PATIENT
  Age: 15 Year
  Sex: Female
  Weight: 58.8 kg

DRUGS (1)
  1. ACETAMINOPHEN [Suspect]
     Active Substance: ACETAMINOPHEN
     Indication: Product used for unknown indication
     Dosage: 7.5 GRAM
     Route: 061
     Dates: start: 20240129, end: 20240129

REACTIONS (6)
  - Intentional self-injury [Unknown]
  - Abdominal pain [Unknown]
  - Vomiting [Unknown]
  - Toxicity to various agents [Unknown]
  - Transaminases increased [Unknown]
  - Intentional overdose [Unknown]

NARRATIVE: CASE EVENT DATE: 20240129
